APPROVED DRUG PRODUCT: THIOTEPA
Active Ingredient: THIOTEPA
Strength: 15MG/VIAL
Dosage Form/Route: INJECTABLE;INJECTION
Application: A075698 | Product #001
Applicant: FRESENIUS KABI USA LLC
Approved: Sep 20, 2001 | RLD: No | RS: No | Type: DISCN